FAERS Safety Report 10260990 (Version 1)
Quarter: 2014Q2

REPORT INFORMATION
  Report Type: Spontaneous
  Country: US (occurrence: US)
  Receive Date: 20140626
  Receipt Date: 20140626
  Transmission Date: 20141212
  Serious: No
  Sender: FDA-Public Use
  Company Number: US-PFIZER INC-2014171937

PATIENT
  Age: 70 Year
  Sex: Female
  Weight: 82.54 kg

DRUGS (2)
  1. TIKOSYN [Suspect]
     Indication: ATRIAL FIBRILLATION
     Dosage: 250 UG, 2X/DAY
     Dates: start: 20140616, end: 20140619
  2. LISINOPRIL [Concomitant]
     Indication: HYPERTENSION
     Dosage: 40 MG, 1X/DAY

REACTIONS (2)
  - Aphonia [Not Recovered/Not Resolved]
  - Cough [Not Recovered/Not Resolved]
